FAERS Safety Report 16870393 (Version 1)
Quarter: 2019Q3

REPORT INFORMATION
  Report Type: Spontaneous
  Country: US (occurrence: US)
  Receive Date: 20190930
  Receipt Date: 20190930
  Transmission Date: 20191005
  Serious: No
  Sender: FDA-Public Use
  Company Number: US-ROMARKLABS-2019-US-000081

PATIENT
  Sex: Female

DRUGS (1)
  1. ALINIA [Suspect]
     Active Substance: NITAZOXANIDE
     Indication: PRODUCT USED FOR UNKNOWN INDICATION
     Dosage: 2 TABLETS TWICE DAILY
     Route: 048
     Dates: start: 20190605, end: 20190606

REACTIONS (3)
  - Abdominal pain upper [Unknown]
  - Accidental overdose [Recovered/Resolved]
  - Diarrhoea [Unknown]

NARRATIVE: CASE EVENT DATE: 20190605
